FAERS Safety Report 8756710 (Version 2)
Quarter: 2012Q4

REPORT INFORMATION
  Report Type: Report from Study
  Country: JP (occurrence: JP)
  Receive Date: 20120828
  Receipt Date: 20121101
  Transmission Date: 20130627
  Serious: Yes (Death)
  Sender: FDA-Public Use
  Company Number: PHHY2012JP073651

PATIENT
  Age: 83 Year
  Sex: Male

DRUGS (3)
  1. EXELON [Suspect]
     Indication: DEMENTIA ALZHEIMER^S TYPE
     Dosage: 4.5 mg, daily
     Route: 062
     Dates: start: 20120305, end: 20120401
  2. EXELON [Suspect]
     Dosage: 9 mg, daily
     Route: 062
     Dates: start: 20120402, end: 20120506
  3. EXELON [Suspect]
     Dosage: 13.5 mg, daily
     Route: 062
     Dates: start: 20120507, end: 20120610

REACTIONS (2)
  - Colon cancer [Fatal]
  - Diarrhoea [Recovering/Resolving]
